FAERS Safety Report 20674080 (Version 5)
Quarter: 2022Q4

REPORT INFORMATION
  Report Type: Report from Study
  Country: US (occurrence: US)
  Receive Date: 20220405
  Receipt Date: 20221010
  Transmission Date: 20230113
  Serious: Yes (Other)
  Sender: FDA-Public Use
  Company Number: US-TAKEDA-2022TUS021378

PATIENT
  Age: 64 Year
  Sex: Female

DRUGS (2)
  1. HUMAN IMMUNOGLOBULIN G [Suspect]
     Active Substance: HUMAN IMMUNOGLOBULIN G
     Indication: Primary immunodeficiency syndrome
     Dosage: UNK
     Route: 042
  2. COVID-19 VACCINE NOS [Suspect]
     Active Substance: COVID-19 VACCINE NOS
     Indication: COVID-19 immunisation
     Dosage: UNK
     Route: 065

REACTIONS (17)
  - Thrombosis [Recovering/Resolving]
  - Oral candidiasis [Recovering/Resolving]
  - Cardiac failure congestive [Unknown]
  - Cellulitis [Unknown]
  - Anosmia [Unknown]
  - Ageusia [Unknown]
  - Feeding disorder [Unknown]
  - Weight decreased [Unknown]
  - Swelling [Unknown]
  - Blood pressure increased [Unknown]
  - Temporomandibular joint syndrome [Unknown]
  - Multiple allergies [Unknown]
  - Immunisation reaction [Unknown]
  - Gingivitis [Unknown]
  - Poor venous access [Unknown]
  - Infusion site bruising [Unknown]
  - Irritability [Unknown]

NARRATIVE: CASE EVENT DATE: 20210617
